FAERS Safety Report 4918292-9 (Version None)
Quarter: 2006Q1

REPORT INFORMATION
  Report Type: 
  Country: None (occurrence: None)
  Receive Date: 20060222
  Receipt Date: 20051011
  Transmission Date: 20060701
  Serious: Yes (Other)
  Sender: FDA-Public Use
  Company Number: PHBS2005JP15036

PATIENT
  Age: 79 Year
  Sex: Male
  Weight: 51 kg

DRUGS (6)
  1. COMELIAN [Concomitant]
     Indication: MYOCARDIAL INFARCTION
     Dosage: 150 MG/D
     Route: 048
     Dates: start: 19990616
  2. NITOROL [Concomitant]
     Indication: MYOCARDIAL INFARCTION
     Dosage: 15 MG/D
     Route: 048
     Dates: start: 19990616
  3. EPINASTINE HYDROCHLORIDE [Concomitant]
     Indication: ARTHROPOD STING
     Dosage: 10 MG/D
     Route: 048
     Dates: start: 20050928, end: 20050928
  4. CARDY [Concomitant]
  5. LAMISIL [Suspect]
     Indication: NAIL TINEA
     Dosage: 125 MG, QD
     Route: 048
     Dates: start: 20050928, end: 20050928
  6. COMPOUND EPITHANATE-G [Concomitant]
     Indication: GASTRITIS
     Dosage: 3 G/D
     Route: 048
     Dates: start: 20000212, end: 20051112

REACTIONS (6)
  - ARRHYTHMIA [None]
  - CEREBRAL ISCHAEMIA [None]
  - CHEST DISCOMFORT [None]
  - DIZZINESS [None]
  - FEELING ABNORMAL [None]
  - VENTRICULAR EXTRASYSTOLES [None]
